FAERS Safety Report 4996240-3 (Version None)
Quarter: 2006Q2

REPORT INFORMATION
  Report Type: 
  Country: None (occurrence: None)
  Receive Date: 20060509
  Receipt Date: 20051003
  Transmission Date: 20061013
  Serious: Yes (Hospitalization, Other)
  Sender: FDA-Public Use
  Company Number: PHEH2005US10979

PATIENT
  Age: 57 Year
  Sex: Female

DRUGS (9)
  1. AREDIA [Suspect]
     Indication: MULTIPLE MYELOMA
     Dosage: 90 MG, QMO
  2. NEURONTIN [Concomitant]
  3. COUMADIN [Concomitant]
  4. LASIX [Concomitant]
  5. DITROPAN [Concomitant]
  6. MIACALCIN [Concomitant]
  7. CALCIUM GLUCONATE [Concomitant]
  8. MULTIVITAMIN [Concomitant]
  9. NICORETTE [Concomitant]

REACTIONS (33)
  - ABSCESS JAW [None]
  - ANXIETY [None]
  - BACK PAIN [None]
  - BLOOD CREATININE INCREASED [None]
  - BLOOD GLUCOSE INCREASED [None]
  - BLOOD UREA INCREASED [None]
  - BONE DISORDER [None]
  - BONE EROSION [None]
  - CHRONIC RESPIRATORY FAILURE [None]
  - DEPRESSION [None]
  - DIABETES MELLITUS NON-INSULIN-DEPENDENT [None]
  - DISEASE PROGRESSION [None]
  - DYSPNOEA [None]
  - GINGIVITIS [None]
  - HYPERCALCAEMIA [None]
  - HYPERPARATHYROIDISM PRIMARY [None]
  - HYPOXIA [None]
  - IMPAIRED HEALING [None]
  - MOUTH ULCERATION [None]
  - MULTIPLE MYELOMA [None]
  - MYOCLONUS [None]
  - NAUSEA [None]
  - OSTEONECROSIS [None]
  - PNEUMONIA [None]
  - PRIMARY SEQUESTRUM [None]
  - RENAL FAILURE [None]
  - RESPIRATORY TRACT INFECTION [None]
  - SEQUESTRECTOMY [None]
  - SOFT TISSUE INFECTION [None]
  - TOOTH DISORDER [None]
  - TOOTH EXTRACTION [None]
  - URINARY TRACT INFECTION [None]
  - VOMITING [None]
